FAERS Safety Report 16148396 (Version 1)
Quarter: 2019Q2

REPORT INFORMATION
  Report Type: Spontaneous
  Country: SG (occurrence: SG)
  Receive Date: 20190402
  Receipt Date: 20190402
  Transmission Date: 20190711
  Serious: Yes (Other)
  Sender: FDA-Public Use
  Company Number: IND-SG-009507513-1904SGP000378

PATIENT
  Sex: Male

DRUGS (2)
  1. INOSINE [Suspect]
     Active Substance: INOSINE
  2. ARCOXIA [Suspect]
     Active Substance: ETORICOXIB

REACTIONS (4)
  - Sensory loss [Recovered/Resolved]
  - Hypoaesthesia [Recovered/Resolved]
  - Pruritus [Recovered/Resolved]
  - Skin exfoliation [Recovered/Resolved]
